FAERS Safety Report 8184282-9 (Version None)
Quarter: 2012Q1

REPORT INFORMATION
  Report Type: 
  Country: None (occurrence: None)
  Receive Date: 20120305
  Receipt Date: 20120227
  Transmission Date: 20120608
  Serious: Yes (Hospitalization)
  Sender: FDA-Public Use
  Company Number: US-GILEAD-2012-0050565

PATIENT
  Sex: Female

DRUGS (11)
  1. NIFEDIPINE [Concomitant]
     Dosage: UNK
  2. LISINOPRIL [Concomitant]
     Dosage: UNK
  3. ZOFRAN                             /00955302/ [Concomitant]
     Dosage: UNK
  4. LETAIRIS [Suspect]
     Indication: PULMONARY HYPERTENSION
     Dosage: 5 MG, UNK
     Route: 048
     Dates: start: 20110813
  5. PLAVIX [Concomitant]
     Dosage: UNK
  6. PRAVASTATIN [Concomitant]
     Dosage: UNK
  7. REVATIO [Concomitant]
     Dosage: UNK
  8. EPOPROSTENOL [Concomitant]
     Dosage: UNK
  9. LOPRESSOR [Concomitant]
     Dosage: UNK
  10. ZEMPLAR [Concomitant]
     Dosage: UNK
  11. ASPIRIN [Concomitant]
     Dosage: UNK

REACTIONS (1)
  - PANCREATITIS [None]
